FAERS Safety Report 5121189-5 (Version None)
Quarter: 2006Q4

REPORT INFORMATION
  Report Type: 
  Country: None (occurrence: None)
  Receive Date: 20061002
  Receipt Date: 20060922
  Transmission Date: 20070319
  Serious: Yes (Hospitalization, Other)
  Sender: FDA-Public Use
  Company Number: 147916USA

PATIENT
  Age: 49 Year
  Sex: Male

DRUGS (7)
  1. FLUPHENAZINE DECANOATE [Suspect]
     Indication: BIPOLAR DISORDER
     Dosage: ONCE EVERY 14 DAYS
     Dates: start: 20040701, end: 20041025
  2. FLUPHENAZINE DECANOATE [Suspect]
     Indication: BIPOLAR I DISORDER
     Dosage: ONCE EVERY 14 DAYS
     Dates: start: 20040701, end: 20041025
  3. FLUNISOLIDE [Concomitant]
  4. LISINOPRIL [Concomitant]
  5. METFORMIN HYDROCHLORIDE [Concomitant]
  6. HYDROCHLOROTHIAZIDE [Concomitant]
  7. TERAZOSIN HCL [Concomitant]

REACTIONS (7)
  - APALLIC SYNDROME [None]
  - CARDIO-RESPIRATORY ARREST [None]
  - CYANOSIS [None]
  - DYSPNOEA [None]
  - DYSURIA [None]
  - HEPATOCELLULAR DAMAGE [None]
  - TARDIVE DYSKINESIA [None]
